FAERS Safety Report 4494258-0 (Version None)
Quarter: 2004Q4

REPORT INFORMATION
  Report Type: 
  Country: None (occurrence: None)
  Receive Date: 20041105
  Receipt Date: 20041027
  Transmission Date: 20050328
  Serious: Yes (Hospitalization)
  Sender: FDA-Public Use
  Company Number: US-AMGEN-US097232

PATIENT
  Sex: Male
  Weight: 99.9 kg

DRUGS (4)
  1. NEULASTA [Suspect]
     Indication: CHEMOTHERAPY
     Route: 058
     Dates: start: 20041019
  2. ONCOVIN [Concomitant]
     Dates: start: 20041007
  3. CYTOXAN [Concomitant]
     Dates: start: 20041007
  4. RITUXAN [Concomitant]
     Dates: start: 20041005

REACTIONS (6)
  - BUNDLE BRANCH BLOCK LEFT [None]
  - CHOLELITHIASIS [None]
  - GASTROOESOPHAGEAL REFLUX DISEASE [None]
  - NEPHROLITHIASIS [None]
  - NON-CARDIAC CHEST PAIN [None]
  - RENAL CYST [None]
